FAERS Safety Report 8772448 (Version 1)
Quarter: 2012Q4

REPORT INFORMATION
  Report Type: 
  Country: US (occurrence: US)
  Receive Date: 20120905
  Receipt Date: 20120905
  Transmission Date: 20130627
  Serious: Yes (Hospitalization)
  Sender: FDA-Public Use
  Company Number: US-FRI-1000037503

PATIENT
  Age: 44 Year

DRUGS (4)
  1. VIIBRYD [Suspect]
     Indication: MAJOR DEPRESSION
     Dosage: 10 mg
     Route: 048
     Dates: start: 20120601, end: 20120607
  2. VIIBRYD [Suspect]
     Dosage: 20 mg
     Route: 048
     Dates: start: 20120608, end: 20120614
  3. VIIBRYD [Suspect]
     Dosage: 40 mg
     Route: 048
     Dates: start: 20120615, end: 20120619
  4. XANAX [Concomitant]
     Route: 048

REACTIONS (1)
  - Pulmonary embolism [Recovered/Resolved]
